FAERS Safety Report 8932753 (Version 3)
Quarter: 2013Q3

REPORT INFORMATION
  Report Type: Spontaneous
  Country: US (occurrence: US)
  Receive Date: 20121129
  Receipt Date: 20130826
  Transmission Date: 20140515
  Serious: Yes (Hospitalization, Disabling)
  Sender: FDA-Public Use
  Company Number: US-BAYER-2012-125000

PATIENT
  Age: 43 Year
  Sex: Female

DRUGS (10)
  1. YASMIN [Suspect]
     Dosage: UNK
     Dates: start: 20070510, end: 20071005
  2. LANTUS [Concomitant]
     Indication: DIABETES MELLITUS
  3. HUMULIN R [Concomitant]
     Indication: DIABETES MELLITUS
  4. SYNTHROID [Concomitant]
     Dosage: 125 MCG
  5. SYNTHROID [Concomitant]
     Dosage: 135 MCG, DAILY
  6. PRILOSEC [Concomitant]
     Dosage: 40 MG, UNK
  7. LEVEMIR [Concomitant]
     Dosage: 50 U, UNK
  8. NOVOLIN R [Concomitant]
     Dosage: 20 U, UNK
  9. COLACE [Concomitant]
  10. CLARITIN [Concomitant]
     Dosage: 10 MG, UNK

REACTIONS (6)
  - Pulmonary embolism [None]
  - Injury [None]
  - Pain [None]
  - Deformity [None]
  - Anxiety [None]
  - Anhedonia [None]
